FAERS Safety Report 4276705-2 (Version None)
Quarter: 2004Q1

REPORT INFORMATION
  Report Type: 
  Country: None (occurrence: None)
  Receive Date: 20040120
  Receipt Date: 20031230
  Transmission Date: 20041129
  Serious: Yes (Hospitalization)
  Sender: FDA-Public Use
  Company Number: 200314961FR

PATIENT
  Age: 3 Year
  Sex: Female
  Weight: 13 kg

DRUGS (6)
  1. RIFADIN [Suspect]
     Dosage: 200 MG BID IV
     Route: 042
     Dates: start: 20031121, end: 20031201
  2. CLAFORAN [Suspect]
     Dosage: 4 G/DAY IV
     Route: 042
     Dates: start: 20031119, end: 20031121
  3. VANCOMYCIN HYDROCHLORIDE (VANCOMYCINE) POWDER FOR INFUSION [Suspect]
     Dosage: 900 MG DAY IV
     Route: 042
     Dates: start: 20031119, end: 20031201
  4. PHENOBARBITAL SODIUM 100MG CAP [Concomitant]
  5. FOSFOMYCIN SODIUM (FOSFOCINE) [Concomitant]
  6. ACETAMINOPHEN [Concomitant]

REACTIONS (11)
  - ALANINE AMINOTRANSFERASE INCREASED [None]
  - ARACHNOID CYST [None]
  - ASPARTATE AMINOTRANSFERASE INCREASED [None]
  - BLOOD AMYLASE INCREASED [None]
  - EPILEPSY [None]
  - GAMMA-GLUTAMYLTRANSFERASE INCREASED [None]
  - GRANULOCYTOPENIA [None]
  - HEPATIC TRAUMA [None]
  - MENINGITIS STAPHYLOCOCCAL [None]
  - NEUTROPENIA [None]
  - PYREXIA [None]
